FAERS Safety Report 6944812-9 (Version None)
Quarter: 2010Q3

REPORT INFORMATION
  Report Type: 
  Country: None (occurrence: None)
  Receive Date: 20100827
  Receipt Date: 20100818
  Transmission Date: 20110219
  Serious: Yes (Death, Hospitalization, Other)
  Sender: FDA-Public Use
  Company Number: FR-BAYER-201036013GPV

PATIENT
  Age: 68 Year
  Sex: Male
  Weight: 82 kg

DRUGS (10)
  1. SORAFENIB [Suspect]
     Indication: HEPATIC NEOPLASM MALIGNANT
     Dosage: TOTAL DAILY DOSE: 200 MG  UNIT DOSE: 200 MG
     Route: 048
     Dates: start: 20100602, end: 20100616
  2. SORAFENIB [Suspect]
     Dosage: TOTAL DAILY DOSE: 800 MG  UNIT DOSE: 200 MG
     Route: 048
     Dates: start: 20100617, end: 20100812
  3. PLACEBO TO ERLOTINIB [Suspect]
     Indication: HEPATIC NEOPLASM MALIGNANT
     Dosage: TOTAL DAILY DOSE: 150 MG
     Route: 048
     Dates: start: 20100617, end: 20100812
  4. PLACEBO TO ERLOTINIB [Suspect]
     Route: 048
     Dates: start: 20100602, end: 20100616
  5. PROPRANOLOL [Concomitant]
     Indication: VARICES OESOPHAGEAL
     Dosage: 160 MG
     Dates: start: 20080301
  6. METFORMIN HCL [Concomitant]
     Indication: TYPE 2 DIABETES MELLITUS
     Dosage: 3000 MG
     Dates: start: 20090415
  7. ENALAPRIL MALEATE [Concomitant]
     Indication: HYPERTENSION
     Dates: start: 20100401
  8. GLIMEPIRIDE [Concomitant]
     Indication: TYPE 2 DIABETES MELLITUS
     Dosage: 4 MG
     Dates: start: 20091013
  9. LERCAN [Concomitant]
     Indication: HYPERTENSION
     Dates: start: 20091001
  10. CAPTOPRIL [Concomitant]
     Indication: HYPERTENSION
     Dosage: 25 MG
     Dates: start: 20100813, end: 20100813

REACTIONS (2)
  - ENCEPHALOPATHY [None]
  - GENERAL PHYSICAL HEALTH DETERIORATION [None]
